FAERS Safety Report 8869914 (Version 1)
Quarter: 2012Q4

REPORT INFORMATION
  Report Type: 
  Country: US (occurrence: US)
  Receive Date: 20121026
  Receipt Date: 20121026
  Transmission Date: 20130627
  Serious: No
  Sender: FDA-Public Use
  Company Number: US-AMGEN-USASP2012045877

PATIENT
  Sex: Female
  Weight: 92.97 kg

DRUGS (15)
  1. ENBREL [Suspect]
     Indication: PRODUCT USED FOR UNKNOWN INDICATION
     Dosage: 50 mg, qwk
     Route: 058
  2. CENTRUM                            /00554501/ [Concomitant]
  3. PRAVASTATIN [Concomitant]
     Dosage: 20 mg, UNK
  4. GABAPENTIN [Concomitant]
     Dosage: 300 mg, UNK
  5. SYMBICORT [Concomitant]
     Dosage: 160-4.5
  6. HYDROCHLOROTH [Concomitant]
     Dosage: 12.5 mg, UNK
  7. KLOR-CON [Concomitant]
     Dosage: 10 mEq, UNK
  8. ACCOLATE [Concomitant]
     Dosage: 10 mg, UNK
  9. VERAPAMIL [Concomitant]
     Dosage: 120 mg, UNK
  10. LEXAPRO [Concomitant]
     Dosage: 10 mg, UNK
  11. SPIRIVA HANDIHALER [Concomitant]
  12. OSCAL [Concomitant]
  13. ABILIFY [Concomitant]
     Dosage: 15 mg, UNK
  14. DIFLUNISAL [Concomitant]
     Dosage: 250 mg, UNK
  15. ASPIRIN [Concomitant]
     Dosage: 81 mg, UNK

REACTIONS (1)
  - Injection site pruritus [Unknown]
